FAERS Safety Report 5834995-6 (Version None)
Quarter: 2008Q3

REPORT INFORMATION
  Report Type: 
  Country: None (occurrence: None)
  Receive Date: 20080804
  Receipt Date: 20080715
  Transmission Date: 20090109
  Serious: Yes (Other)
  Sender: FDA-Public Use
  Company Number: 1000000360

PATIENT
  Age: 64 Year
  Sex: Female
  Weight: 60 kg

DRUGS (5)
  1. CITALOPRAM ORAL SOLUTION (CITALOPRAM HYDROBROMIDE) (DROPS (FOR ORAL US [Suspect]
     Indication: MENTAL DISORDER
     Dosage: 10 MG (10 MG), ORAL; 8 MG (8 MG), ORAL
     Route: 048
     Dates: start: 20080101, end: 20080101
  2. CITALOPRAM ORAL SOLUTION (CITALOPRAM HYDROBROMIDE) (DROPS (FOR ORAL US [Suspect]
     Indication: MENTAL DISORDER
     Dosage: 10 MG (10 MG), ORAL; 8 MG (8 MG), ORAL
     Route: 048
     Dates: start: 20080509, end: 20080101
  3. CITALOPRAM ORAL SOLUTION (CITALOPRAM HYDROBROMIDE) (DROPS (FOR ORAL US [Suspect]
     Indication: MENTAL DISORDER
     Dosage: 6 MG (6 MG), ORAL
     Route: 048
     Dates: start: 20080101, end: 20080620
  4. ARTHROTEC [Concomitant]
  5. IMIGRAN (TABLETS) [Concomitant]

REACTIONS (13)
  - ALOPECIA [None]
  - BLISTER [None]
  - DEHYDRATION [None]
  - DIZZINESS [None]
  - DRY SKIN [None]
  - EPISTAXIS [None]
  - FEELING OF BODY TEMPERATURE CHANGE [None]
  - GINGIVAL BLEEDING [None]
  - HAEMATOCHEZIA [None]
  - HORMONE LEVEL ABNORMAL [None]
  - METABOLIC DISORDER [None]
  - SUICIDAL IDEATION [None]
  - TEMPERATURE REGULATION DISORDER [None]
